FAERS Safety Report 9200618 (Version 2)
Quarter: 2013Q2

REPORT INFORMATION
  Report Type: Spontaneous
  Country: DK (occurrence: DK)
  Receive Date: 20130330
  Receipt Date: 20130422
  Transmission Date: 20140414
  Serious: Yes (Death, Other)
  Sender: FDA-Public Use
  Company Number: DK-RANBAXY-2013RR-66879

PATIENT
  Age: 85 Year
  Sex: Male

DRUGS (2)
  1. DONEPEZIL [Suspect]
     Indication: DEMENTIA
     Dosage: 5 MG, QOD
     Route: 065
     Dates: start: 20130102, end: 20130108
  2. COZAAR [Concomitant]
     Indication: PRODUCT USED FOR UNKNOWN INDICATION
     Dosage: UNK
     Route: 065
     Dates: start: 20130109

REACTIONS (3)
  - Cardiac arrest [Fatal]
  - Hallucination [Unknown]
  - Fatigue [Unknown]
